FAERS Safety Report 9770131 (Version 2)
Quarter: 2013Q4

REPORT INFORMATION
  Report Type: Spontaneous
  Country: US (occurrence: US)
  Receive Date: 20131218
  Receipt Date: 20131218
  Transmission Date: 20140711
  Serious: No
  Sender: FDA-Public Use
  Company Number: US-VERTEX PHARMACEUTICALS INC-AE-2011-000860

PATIENT
  Age: 53 Year
  Sex: Male
  Weight: 72.73 kg

DRUGS (8)
  1. INCIVEK [Suspect]
     Indication: HEPATITIS C
     Dates: start: 20110804
  2. PEGASYS [Concomitant]
     Indication: HEPATITIS C
     Route: 058
     Dates: start: 20110804
  3. COPEGUS [Concomitant]
     Indication: HEPATITIS C
     Dates: start: 20110804
  4. PLAVIX [Concomitant]
  5. TOPROL XL [Concomitant]
  6. LISINOPRIL [Concomitant]
  7. ASPIRIN [Concomitant]
  8. CENTRUM SILVER [Concomitant]

REACTIONS (1)
  - Pruritus [Not Recovered/Not Resolved]
